FAERS Safety Report 4843691-3 (Version None)
Quarter: 2005Q4

REPORT INFORMATION
  Report Type: 
  Country: None (occurrence: None)
  Receive Date: 20051129
  Receipt Date: 20051114
  Transmission Date: 20060501
  Serious: Yes (Hospitalization, Other)
  Sender: FDA-Public Use
  Company Number: JP200511001121

PATIENT
  Age: 1 Day
  Weight: 1.2 kg

DRUGS (2)
  1. HUMALOG [Suspect]
     Dosage: TRANSPLACENTAL
     Route: 064
  2. NOVOLIN N [Concomitant]

REACTIONS (8)
  - CAESAREAN SECTION [None]
  - CRYPTORCHISM [None]
  - DRUG EXPOSURE DURING PREGNANCY [None]
  - PATENT DUCTUS ARTERIOSUS [None]
  - POLYDACTYLY [None]
  - PRE-ECLAMPSIA [None]
  - PREMATURE BABY [None]
  - WEIGHT DECREASE NEONATAL [None]
